FAERS Safety Report 4592900-7 (Version None)
Quarter: 2005Q1

REPORT INFORMATION
  Report Type: 
  Country: None (occurrence: None)
  Receive Date: 20050228
  Receipt Date: 20041013
  Transmission Date: 20050727
  Serious: Yes (Other)
  Sender: FDA-Public Use
  Company Number: US-GLAXOSMITHKLINE-A0529678A

PATIENT
  Age: 67 Year
  Sex: Female

DRUGS (15)
  1. LAMICTAL [Suspect]
     Indication: BIPOLAR DISORDER
     Route: 048
     Dates: start: 20031201, end: 20041022
  2. RELAFEN [Suspect]
     Indication: PAIN IN EXTREMITY
     Dates: start: 20031201, end: 20031201
  3. POLYSPORIN [Suspect]
  4. DIABETES MEDICATION [Concomitant]
  5. ARTHRITIS MEDICATION [Concomitant]
  6. IMDUR [Concomitant]
  7. COREG [Concomitant]
     Dosage: 25MG TWICE PER DAY
  8. COZAAR [Concomitant]
  9. SYNTHROID [Concomitant]
  10. POTASSIUM CHLORIDE [Concomitant]
  11. PROZAC [Concomitant]
     Dosage: 20MG PER DAY
     Route: 048
  12. XANAX [Concomitant]
     Dosage: .5MG PER DAY
     Route: 048
  13. ASPIRIN [Concomitant]
  14. PRILOSEC [Concomitant]
  15. HUMALOG [Concomitant]

REACTIONS (37)
  - CARDIAC FAILURE CONGESTIVE [None]
  - CRYOTHERAPY [None]
  - DERMATITIS [None]
  - DERMATITIS CONTACT [None]
  - DERMATITIS EXFOLIATIVE [None]
  - DRUG ERUPTION [None]
  - DYSPNOEA [None]
  - EMOTIONAL DISTRESS [None]
  - EXCORIATION [None]
  - EYE OEDEMA [None]
  - FACE OEDEMA [None]
  - FUNGAL RASH [None]
  - HYPERKERATOSIS [None]
  - ILL-DEFINED DISORDER [None]
  - INFLAMMATION [None]
  - INTERTRIGO [None]
  - LICHEN PLANUS [None]
  - LYMPHADENITIS [None]
  - MALAISE [None]
  - MULTIPLE SCLEROSIS [None]
  - OEDEMA PERIPHERAL [None]
  - PAIN [None]
  - PETECHIAE [None]
  - PRURITUS [None]
  - RALES [None]
  - RASH [None]
  - RASH GENERALISED [None]
  - RASH MORBILLIFORM [None]
  - RASH PAPULAR [None]
  - SEBACEOUS HYPERPLASIA [None]
  - SEBORRHOEIC KERATOSIS [None]
  - SKIN DISCOLOURATION [None]
  - SYSTEMIC LUPUS ERYTHEMATOSUS [None]
  - URTICARIA [None]
  - VASCULITIS [None]
  - WEIGHT INCREASED [None]
  - WHEEZING [None]
